FAERS Safety Report 7952193-7 (Version None)
Quarter: 2011Q4

REPORT INFORMATION
  Report Type: 
  Country: None (occurrence: None)
  Receive Date: 20111201
  Receipt Date: 20111125
  Transmission Date: 20120403
  Serious: Yes (Other)
  Sender: FDA-Public Use
  Company Number: PHHY2011BR104044

PATIENT
  Age: 73 Year
  Sex: Female

DRUGS (2)
  1. DIOVAN HCT [Suspect]
     Indication: HYPERTENSION
     Dosage: 320/25 MG TWO TABLETS DAILY
  2. DIOVAN HCT [Suspect]
     Dosage: 320/25 MG HALF TABLET IN THE MORNING AND HALF TABLET AT NIGHT

REACTIONS (3)
  - ARRHYTHMIA [None]
  - BLOOD PRESSURE INADEQUATELY CONTROLLED [None]
  - WRONG TECHNIQUE IN DRUG USAGE PROCESS [None]
